FAERS Safety Report 5493207-6 (Version None)
Quarter: 2007Q4

REPORT INFORMATION
  Report Type: 
  Country: None (occurrence: None)
  Receive Date: 20071023
  Receipt Date: 20071012
  Transmission Date: 20080405
  Serious: Yes (Hospitalization)
  Sender: FDA-Public Use
  Company Number: B0484992A

PATIENT
  Age: 63 Year
  Sex: Male

DRUGS (6)
  1. AVANDAMET [Suspect]
     Route: 048
     Dates: start: 20070522, end: 20070625
  2. EZETROL [Suspect]
     Dates: start: 20070522, end: 20070625
  3. ATACAND [Concomitant]
  4. ALLOPURINOL [Concomitant]
  5. METFORMIN HCL [Concomitant]
     Dates: end: 20070521
  6. NOVONORM [Concomitant]
     Dates: start: 20070630

REACTIONS (9)
  - ARTHRALGIA [None]
  - DERMATITIS BULLOUS [None]
  - ECCHYMOSIS [None]
  - EOSINOPHILIA [None]
  - HENOCH-SCHONLEIN PURPURA [None]
  - LEUKOCYTOCLASTIC VASCULITIS [None]
  - OEDEMA PERIPHERAL [None]
  - RASH MACULAR [None]
  - SKIN NECROSIS [None]
